FAERS Safety Report 19798591 (Version 2)
Quarter: 2021Q3

REPORT INFORMATION
  Report Type: Spontaneous
  Country: US (occurrence: US)
  Receive Date: 20210907
  Receipt Date: 20210909
  Transmission Date: 20211014
  Serious: Yes (Hospitalization)
  Sender: FDA-Public Use
  Company Number: US-QED THERAPEUTICS-2118058

PATIENT
  Age: 69 Year
  Sex: Female

DRUGS (10)
  1. ENALAPRIL [Concomitant]
     Active Substance: ENALAPRIL
     Route: 065
  2. PREVACID [Concomitant]
     Active Substance: LANSOPRAZOLE
     Route: 065
  3. ASPIRIN. [Concomitant]
     Active Substance: ASPIRIN
     Route: 065
  4. TRUSELTIQ [Suspect]
     Active Substance: INFIGRATINIB
     Indication: CHOLANGIOCARCINOMA
     Route: 048
     Dates: start: 20210803, end: 20210820
  5. PEPCID [Concomitant]
     Active Substance: FAMOTIDINE
     Route: 065
  6. CRESTOR [Concomitant]
     Active Substance: ROSUVASTATIN CALCIUM
     Route: 065
  7. MULTIVITAMIN [Concomitant]
     Active Substance: VITAMINS
     Route: 065
  8. METOPROLOL. [Concomitant]
     Active Substance: METOPROLOL
     Route: 065
  9. BIOTIN [Concomitant]
     Active Substance: BIOTIN
     Route: 065
  10. HYDROCHLOROTHIAZIDE. [Concomitant]
     Active Substance: HYDROCHLOROTHIAZIDE
     Route: 065

REACTIONS (10)
  - Hyperphosphataemia [Not Recovered/Not Resolved]
  - Blood creatinine increased [Unknown]
  - Liver function test increased [Unknown]
  - Diarrhoea [Not Recovered/Not Resolved]
  - Skin exfoliation [Unknown]
  - Constipation [Not Recovered/Not Resolved]
  - Fatigue [Not Recovered/Not Resolved]
  - Lacrimation increased [Unknown]
  - Blood magnesium decreased [Unknown]
  - Taste disorder [Unknown]

NARRATIVE: CASE EVENT DATE: 202108
